FAERS Safety Report 22195149 (Version 1)
Quarter: 2023Q2

REPORT INFORMATION
  Report Type: Spontaneous
  Country: US (occurrence: US)
  Receive Date: 20230411
  Receipt Date: 20230411
  Transmission Date: 20230722
  Serious: No
  Sender: FDA-Public Use
  Company Number: US-002147023-NVSC2023US083125

PATIENT
  Age: 66 Year
  Sex: Female

DRUGS (3)
  1. ZOFRAN [Suspect]
     Active Substance: ONDANSETRON HYDROCHLORIDE
     Indication: Product used for unknown indication
     Dosage: UNK
     Route: 065
  2. LENVIMA [Suspect]
     Active Substance: LENVATINIB
     Indication: Endometrial cancer
     Dosage: 18 MG
     Route: 065
     Dates: start: 20230226
  3. LENVIMA [Suspect]
     Active Substance: LENVATINIB
     Indication: Metastases to lung

REACTIONS (6)
  - Constipation [Unknown]
  - Blood pressure increased [Unknown]
  - Epistaxis [Unknown]
  - Sinus headache [Unknown]
  - Rhinorrhoea [Unknown]
  - Headache [Unknown]
